FAERS Safety Report 22907066 (Version 4)
Quarter: 2023Q4

REPORT INFORMATION
  Report Type: Spontaneous
  Country: US (occurrence: US)
  Receive Date: 20230905
  Receipt Date: 20231108
  Transmission Date: 20240109
  Serious: Yes (Other)
  Sender: FDA-Public Use
  Company Number: US-PFIZER INC-202300287080

PATIENT
  Age: 70 Year
  Sex: Female
  Weight: 82.1 kg

DRUGS (3)
  1. GENOTROPIN [Suspect]
     Active Substance: SOMATROPIN
     Indication: Pituitary tumour removal
     Dosage: 3 MG, 1X/DAY
  2. GENOTROPIN [Suspect]
     Active Substance: SOMATROPIN
     Indication: Asthenia
     Dosage: 0.3 MG
  3. GENOTROPIN [Suspect]
     Active Substance: SOMATROPIN
     Indication: Fatigue

REACTIONS (2)
  - Sinus operation [Unknown]
  - Off label use [Unknown]
